FAERS Safety Report 5229724-3 (Version None)
Quarter: 2007Q1

REPORT INFORMATION
  Report Type: 
  Country: None (occurrence: None)
  Receive Date: 20070206
  Receipt Date: 20070131
  Transmission Date: 20070707
  Serious: Yes (Hospitalization, Other)
  Sender: FDA-Public Use
  Company Number: US-PFIZER INC-2005069676

PATIENT
  Sex: Female
  Weight: 69.9 kg

DRUGS (7)
  1. GEODON [Suspect]
     Indication: HALLUCINATION, AUDITORY
     Dates: start: 20040401, end: 20050426
  2. SUDAFED 12 HOUR [Suspect]
     Indication: NASOPHARYNGITIS
     Route: 048
  3. SUDAFED 12 HOUR [Suspect]
     Indication: NASAL CONGESTION
  4. METFORMIN HCL [Suspect]
  5. WELLBUTRIN [Suspect]
  6. ZYPREXA [Concomitant]
  7. MORPHINE [Concomitant]
     Dosage: DAILY DOSE:35MG

REACTIONS (9)
  - COMA [None]
  - ENCEPHALOPATHY [None]
  - FATIGUE [None]
  - HEMIPLEGIA [None]
  - LOSS OF CONSCIOUSNESS [None]
  - MOBILITY DECREASED [None]
  - NASOPHARYNGITIS [None]
  - PNEUMONIA ASPIRATION [None]
  - VOMITING [None]
